FAERS Safety Report 18257280 (Version 4)
Quarter: 2022Q2

REPORT INFORMATION
  Report Type: Other
  Country: US (occurrence: None)
  Receive Date: 20200911
  Receipt Date: 20220426
  Transmission Date: 20220721
  Serious: Yes (Other)
  Sender: FDA-Public Use
  Company Number: US-ROCHE-2674301

PATIENT
  Sex: Female

DRUGS (8)
  1. XELODA [Suspect]
     Active Substance: CAPECITABINE
     Indication: Rectal cancer
     Dosage: TAKE 4 TABLET(S) BY MOUTH TWICE A DAY FOR 2 WEEK(S) AS DIRECTED?TAKE 3 TABLETS PO BID MONDAY THROUGH
     Route: 048
  2. XELODA [Suspect]
     Active Substance: CAPECITABINE
     Dosage: TAKE 3 TABLET(S) BY MOUTH EVERY MORNING AND TAKE 2 TABLET(S) BY MOUTH EVERY EVENING 1 WEEK(S) ON, 1
     Route: 048
  3. XELODA [Suspect]
     Active Substance: CAPECITABINE
     Dosage: TAKE 2 TABLETS BY MOUTH TWICE A DAY 1 WEEKS ON, 1 WEEKS OFF
     Route: 048
  4. CHOLECALCIFEROL [Concomitant]
     Active Substance: CHOLECALCIFEROL
     Dosage: 125 MCG
     Route: 048
  5. ESTRADIOL [Concomitant]
     Active Substance: ESTRADIOL
     Route: 048
  6. FUROSEMIDE [Concomitant]
     Active Substance: FUROSEMIDE
     Route: 048
  7. PREDNISONE [Concomitant]
     Active Substance: PREDNISONE
     Route: 048
  8. ROSUVASTATIN [Concomitant]
     Active Substance: ROSUVASTATIN
     Route: 048

REACTIONS (1)
  - Hypoacusis [Unknown]
